FAERS Safety Report 7289088-0 (Version None)
Quarter: 2011Q1

REPORT INFORMATION
  Report Type: 
  Country: None (occurrence: None)
  Receive Date: 20110211
  Receipt Date: 20110207
  Transmission Date: 20110831
  Serious: Yes (Hospitalization)
  Sender: FDA-Public Use
  Company Number: NL-MEDIMMUNE-MEDI-0011804

PATIENT
  Sex: Female
  Weight: 2.94 kg

DRUGS (1)
  1. SYNAGIS [Suspect]
     Route: 030
     Dates: start: 20100101, end: 20101105

REACTIONS (9)
  - RESPIRATORY SYNCYTIAL VIRUS INFECTION [None]
  - ELECTROENCEPHALOGRAM ABNORMAL [None]
  - ASTHENIA [None]
  - HYPOVENTILATION [None]
  - APNOEA [None]
  - NERVOUS SYSTEM DISORDER [None]
  - FLUID INTAKE REDUCED [None]
  - PROTEIN TOTAL INCREASED [None]
  - CYANOSIS [None]
